FAERS Safety Report 25772513 (Version 3)
Quarter: 2025Q3

REPORT INFORMATION
  Report Type: Report from Study
  Country: EU (occurrence: EU)
  Receive Date: 20250908
  Receipt Date: 20250919
  Transmission Date: 20251020
  Serious: Yes (Life-Threatening, Hospitalization, Other)
  Sender: AUROBINDO
  Company Number: EU-AUROBINDO-AUR-APL-2025-044763

PATIENT
  Age: 66 Year
  Sex: Male

DRUGS (33)
  1. BELINOSTAT [Suspect]
     Active Substance: BELINOSTAT
     Indication: Peripheral T-cell lymphoma unspecified stage IV
     Route: 042
     Dates: start: 20250813
  2. BELINOSTAT [Suspect]
     Active Substance: BELINOSTAT
     Route: 042
     Dates: start: 20250814, end: 20250814
  3. BELINOSTAT [Suspect]
     Active Substance: BELINOSTAT
     Route: 042
     Dates: start: 20250815, end: 20250815
  4. BELINOSTAT [Suspect]
     Active Substance: BELINOSTAT
     Route: 042
     Dates: start: 20250816, end: 20250816
  5. BELINOSTAT [Suspect]
     Active Substance: BELINOSTAT
     Route: 042
     Dates: start: 20250817, end: 20250817
  6. BELINOSTAT [Suspect]
     Active Substance: BELINOSTAT
     Route: 042
     Dates: start: 20250818, end: 20250818
  7. BELINOSTAT [Suspect]
     Active Substance: BELINOSTAT
     Route: 042
     Dates: start: 20250818
  8. DOXORUBICIN [Suspect]
     Active Substance: DOXORUBICIN
     Indication: Peripheral T-cell lymphoma unspecified stage IV
     Route: 042
     Dates: start: 20250814, end: 20250814
  9. CYCLOPHOSPHAMIDE [Suspect]
     Active Substance: CYCLOPHOSPHAMIDE
     Indication: Peripheral T-cell lymphoma unspecified stage IV
     Route: 042
     Dates: start: 20250814, end: 20250814
  10. ONCOVIN [Suspect]
     Active Substance: VINCRISTINE SULFATE
     Indication: Peripheral T-cell lymphoma unspecified stage IV
     Route: 042
     Dates: start: 20250814, end: 20250814
  11. PREDNISONE [Suspect]
     Active Substance: PREDNISONE
     Indication: Peripheral T-cell lymphoma unspecified stage IV
     Route: 048
     Dates: start: 20250814
  12. PREDNISONE [Suspect]
     Active Substance: PREDNISONE
     Route: 048
     Dates: start: 20250815
  13. PREDNISONE [Suspect]
     Active Substance: PREDNISONE
     Route: 048
     Dates: start: 20250816
  14. PREDNISONE [Suspect]
     Active Substance: PREDNISONE
     Route: 048
     Dates: start: 20250817
  15. PREDNISONE [Suspect]
     Active Substance: PREDNISONE
     Route: 048
     Dates: start: 20250818
  16. ACETAMINOPHEN [Concomitant]
     Active Substance: ACETAMINOPHEN
     Indication: Product used for unknown indication
     Dosage: 1 GRAM, ONCE A DAY
     Route: 048
     Dates: start: 2025
  17. METAMIZOLE [Concomitant]
     Active Substance: METAMIZOLE
     Indication: Product used for unknown indication
     Dosage: 575 MILLIGRAM, ONCE A DAY
     Route: 048
     Dates: start: 20250614
  18. PROBIOTICS NOS [Concomitant]
     Active Substance: PROBIOTICS NOS
     Indication: Product used for unknown indication
     Dosage: 1 UNK, ONCE A DAY
     Route: 048
     Dates: start: 2020
  19. ALLOPURINOL [Concomitant]
     Active Substance: ALLOPURINOL
     Indication: Product used for unknown indication
     Dosage: 300 MILLIGRAM, ONCE A DAY
     Route: 048
     Dates: start: 20250805
  20. FOLIC ACID [Concomitant]
     Active Substance: FOLIC ACID
     Indication: Product used for unknown indication
     Dosage: 5 MILLIGRAM, ONCE A DAY
     Route: 048
     Dates: start: 20250805
  21. Optovit [Concomitant]
     Indication: Product used for unknown indication
     Dosage: 1 UNK, ONCE A DAY
     Route: 048
     Dates: start: 20250805
  22. Optovit [Concomitant]
     Dosage: 1 UNK, ONCE A DAY
     Route: 048
     Dates: start: 20250807, end: 20250807
  23. URSODIOL [Concomitant]
     Active Substance: URSODIOL
     Indication: Product used for unknown indication
     Dosage: 150 MILLIGRAM, 3 TIMES A DAY
     Route: 048
     Dates: start: 20250816
  24. FOLIC ACID [Concomitant]
     Active Substance: FOLIC ACID
     Indication: Product used for unknown indication
     Route: 065
  25. VITAMIN B12 [Concomitant]
     Active Substance: CYANOCOBALAMIN
     Indication: Product used for unknown indication
     Route: 065
  26. Rasburicasa [Concomitant]
     Indication: Product used for unknown indication
     Dosage: UNK, ONCE A DAY
     Route: 042
     Dates: start: 20250805
  27. ACYCLOVIR [Concomitant]
     Active Substance: ACYCLOVIR
     Indication: Product used for unknown indication
     Dosage: 800 MILLIGRAM, ONCE A DAY
     Route: 048
     Dates: start: 20250805
  28. OMEPRAZOLE [Concomitant]
     Active Substance: OMEPRAZOLE
     Indication: Product used for unknown indication
     Dosage: 20 MICROGRAM, ONCE A DAY
     Route: 048
     Dates: start: 20250805
  29. CEFEPIME [Concomitant]
     Active Substance: CEFEPIME HYDROCHLORIDE
     Indication: Pseudomonal bacteraemia
     Dosage: 2 GRAM, 3 TIMES A DAY
     Route: 042
     Dates: start: 20250823
  30. AMIKACIN SULFATE [Concomitant]
     Active Substance: AMIKACIN SULFATE
     Indication: Pseudomonal bacteraemia
     Dosage: 1 GRAM, ONCE A DAY
     Route: 042
     Dates: start: 20250823
  31. CIPROFLOXACIN [Concomitant]
     Active Substance: CIPROFLOXACIN
     Indication: Pseudomonal bacteraemia
     Dosage: 750 MILLIGRAM, TWO TIMES A DAY
     Route: 042
     Dates: start: 20250823
  32. CIPROFLOXACIN [Concomitant]
     Active Substance: CIPROFLOXACIN
     Indication: Pseudomonal bacteraemia
     Dosage: 750 MILLIGRAM, TWO TIMES A DAY
     Route: 048
     Dates: start: 20250825
  33. Astenolit [Concomitant]
     Indication: Product used for unknown indication
     Dosage: 1 UNK, ONCE A DAY
     Route: 048
     Dates: start: 20250806

REACTIONS (7)
  - Neutropenia [Recovered/Resolved]
  - Pseudomonas infection [Recovered/Resolved]
  - Pseudomonal bacteraemia [Recovered/Resolved]
  - Alanine aminotransferase increased [Recovered/Resolved]
  - Aspartate aminotransferase increased [Recovered/Resolved with Sequelae]
  - Gamma-glutamyltransferase increased [Recovering/Resolving]
  - Blood alkaline phosphatase increased [Recovering/Resolving]

NARRATIVE: CASE EVENT DATE: 20250816
